FAERS Safety Report 8776943 (Version 2)
Quarter: 2012Q4

REPORT INFORMATION
  Report Type: 
  Country: US (occurrence: US)
  Receive Date: 20120911
  Receipt Date: 20120911
  Transmission Date: 20130627
  Serious: Yes (Life-Threatening, Other)
  Sender: FDA-Public Use
  Company Number: US-ASTRAZENECA-2012SE49219

PATIENT
  Age: 53 Year
  Sex: Female
  Weight: 118.4 kg

DRUGS (9)
  1. SEROQUEL [Suspect]
     Indication: BIPOLAR DISORDER
     Route: 048
     Dates: start: 20120117, end: 20120520
  2. SEROQUEL [Suspect]
     Indication: BIPOLAR DISORDER
     Route: 048
  3. CLONAZEPAM [Suspect]
     Indication: ANXIETY
     Route: 048
  4. VALPROATE [Suspect]
     Indication: BIPOLAR DISORDER
     Route: 048
  5. PAXIL [Concomitant]
  6. KLONOPIN [Concomitant]
  7. METFORMIN [Concomitant]
     Indication: DIABETES MELLITUS
     Dates: start: 20120508
  8. DEPAKOTE [Concomitant]
  9. PAROXETINE [Concomitant]
     Indication: BIPOLAR DISORDER
     Route: 048

REACTIONS (6)
  - Impaired driving ability [Recovered/Resolved]
  - Motor dysfunction [Unknown]
  - Dehydration [Unknown]
  - Dizziness [Unknown]
  - Somnolence [Unknown]
  - Hyperglycaemia [Unknown]
